FAERS Safety Report 5047546-3 (Version None)
Quarter: 2006Q3

REPORT INFORMATION
  Report Type: 
  Country: None (occurrence: None)
  Receive Date: 20060703
  Receipt Date: 20060620
  Transmission Date: 20061208
  Serious: Yes (Hospitalization)
  Sender: FDA-Public Use
  Company Number: 2006078808

PATIENT
  Age: 85 Year
  Sex: Female

DRUGS (1)
  1. LYRICA [Suspect]
     Dosage: 100  MG (50 MG, 2 IN 1 D), ORAL
     Route: 048

REACTIONS (6)
  - CONFUSIONAL STATE [None]
  - DIALYSIS [None]
  - DYSARTHRIA [None]
  - HYPOXIA [None]
  - MENTAL STATUS CHANGES [None]
  - RENAL FAILURE [None]
